FAERS Safety Report 13081238 (Version 1)
Quarter: 2017Q1

REPORT INFORMATION
  Report Type: Spontaneous
  Country: ES (occurrence: ES)
  Receive Date: 20170103
  Receipt Date: 20170103
  Transmission Date: 20170428
  Serious: Yes (Other)
  Sender: FDA-Public Use
  Company Number: ES-JUBILANT CADISTA PHARMACEUTICALS-2016JUB00437

PATIENT
  Age: 33 Year
  Sex: Male

DRUGS (1)
  1. OXCARBAZEPINE. [Suspect]
     Active Substance: OXCARBAZEPINE
     Indication: SIMPLE PARTIAL SEIZURES
     Route: 065

REACTIONS (1)
  - Malabsorption [Recovered/Resolved]
